FAERS Safety Report 7786086-5 (Version None)
Quarter: 2011Q3

REPORT INFORMATION
  Report Type: 
  Country: None (occurrence: None)
  Receive Date: 20110929
  Receipt Date: 20110920
  Transmission Date: 20111222
  Serious: No
  Sender: FDA-Public Use
  Company Number: US-B.I. PHARMACEUTICALS,INC./RIDGEFIELD-2011-BP-22680BP

PATIENT
  Sex: Female

DRUGS (15)
  1. CLONAZEPAM [Concomitant]
     Indication: CONVULSION
     Route: 048
  2. CALCIUM CARBONATE [Concomitant]
     Indication: SUPPLEMENTATION THERAPY
     Route: 048
  3. PROLASTIN-C [Concomitant]
     Indication: ALPHA-1 ANTI-TRYPSIN DEFICIENCY
     Dosage: 4500 U
     Route: 048
  4. VERAPAMIL [Concomitant]
     Indication: HYPERTENSION
     Dosage: 360 MG
     Route: 048
  5. SIMVASTATIN [Concomitant]
     Indication: BLOOD CHOLESTEROL INCREASED
     Dosage: 10 MG
     Route: 048
  6. TRAVATAN [Concomitant]
     Indication: GLAUCOMA
  7. MULTI-VITAMIN [Concomitant]
     Indication: SUPPLEMENTATION THERAPY
     Route: 048
  8. FAMCICLOVIR [Concomitant]
     Indication: HERPES SIMPLEX
     Dosage: 250 MG
     Route: 048
  9. PREDNISONE [Concomitant]
     Indication: CHRONIC OBSTRUCTIVE PULMONARY DISEASE
     Dosage: 2.5 MG
     Route: 048
  10. ALBUTEROL [Concomitant]
     Indication: CHRONIC OBSTRUCTIVE PULMONARY DISEASE
     Dosage: 1.25 MG
     Route: 055
  11. VITAMIN D [Concomitant]
     Indication: OSTEOPOROSIS
     Dosage: 1000 U
     Route: 048
  12. VENTOLIN HFA [Concomitant]
     Indication: CHRONIC OBSTRUCTIVE PULMONARY DISEASE
     Dosage: 90 MCG
     Route: 055
  13. SPIRIVA [Suspect]
     Indication: CHRONIC OBSTRUCTIVE PULMONARY DISEASE
     Dosage: 18 MCG
     Route: 055
     Dates: start: 20040101
  14. ACIPHEX [Concomitant]
     Indication: GASTROOESOPHAGEAL REFLUX DISEASE
     Dosage: 20 MG
     Route: 048
  15. ALPHAGAN [Concomitant]
     Indication: GLAUCOMA
     Dosage: 0.015 MG

REACTIONS (1)
  - DYSPNOEA [None]
